FAERS Safety Report 19011986 (Version 1)
Quarter: 2021Q1

REPORT INFORMATION
  Report Type: Spontaneous
  Country: US (occurrence: US)
  Receive Date: 20210315
  Receipt Date: 20210315
  Transmission Date: 20210420
  Serious: Yes (Other)
  Sender: FDA-Public Use
  Company Number: US-ROCHE-2761194

PATIENT
  Sex: Male

DRUGS (1)
  1. ERIVEDGE [Suspect]
     Active Substance: VISMODEGIB
     Indication: BASAL CELL CARCINOMA
     Dosage: 150 MG DAILY; ONGOING: YES
     Route: 048
     Dates: start: 20200316

REACTIONS (2)
  - Pancytopenia [Unknown]
  - Coronavirus infection [Unknown]
